FAERS Safety Report 14422729 (Version 1)
Quarter: 2018Q1

REPORT INFORMATION
  Report Type: Spontaneous
  Country: FR (occurrence: FR)
  Receive Date: 20180123
  Receipt Date: 20180123
  Transmission Date: 20180509
  Serious: Yes (Hospitalization)
  Sender: FDA-Public Use
  Company Number: FR-MERCK KGAA-2040584

PATIENT
  Age: 68 Year
  Sex: Female

DRUGS (4)
  1. PREVISCAN (FLUINDIONE) [Suspect]
     Active Substance: FLUINDIONE
  2. NOVOTHYROX [Suspect]
     Active Substance: LEVOTHYROXINE SODIUM
     Indication: PRODUCT USED FOR UNKNOWN INDICATION
     Dates: start: 20170301
  3. PREVISCAN (FLUINDIONE) [Suspect]
     Active Substance: FLUINDIONE
     Dates: start: 2016
  4. PREVISCAN (FLUINDIONE) [Suspect]
     Active Substance: FLUINDIONE

REACTIONS (6)
  - Hypothyroidism [Recovered/Resolved]
  - Alopecia [Not Recovered/Not Resolved]
  - Fatigue [Not Recovered/Not Resolved]
  - Headache [None]
  - Weight increased [None]
  - Dizziness [None]

NARRATIVE: CASE EVENT DATE: 201703
